FAERS Safety Report 6817152-6 (Version None)
Quarter: 2010Q3

REPORT INFORMATION
  Report Type: 
  Country: None (occurrence: None)
  Receive Date: 20100706
  Receipt Date: 20100623
  Transmission Date: 20110219
  Serious: Yes (Hospitalization, Other)
  Sender: FDA-Public Use
  Company Number: US-BAYER-201011967NA

PATIENT
  Age: 40 Year
  Sex: Female
  Weight: 98 kg

DRUGS (5)
  1. YAZ [Suspect]
     Indication: PRODUCT USED FOR UNKNOWN INDICATION
     Route: 048
     Dates: start: 20060201, end: 20070118
  2. YASMIN [Suspect]
     Indication: PRODUCT USED FOR UNKNOWN INDICATION
     Route: 048
     Dates: start: 20060201, end: 20070118
  3. FERROUS SULFATE TAB [Concomitant]
     Indication: IRON DEFICIENCY ANAEMIA
     Dosage: TOTAL DAILY DOSE: 975 MG  UNIT DOSE: 325 MG
     Route: 048
     Dates: start: 20070101
  4. UNKNOWN DRUG [Concomitant]
     Indication: NASOPHARYNGITIS
     Route: 065
     Dates: start: 20091201, end: 20100101
  5. UNKNOWN DRUG [Concomitant]
     Indication: PAIN
     Route: 065
     Dates: start: 20091201, end: 20100101

REACTIONS (7)
  - CHEST PAIN [None]
  - DEEP VEIN THROMBOSIS [None]
  - DYSPNOEA [None]
  - GAIT DISTURBANCE [None]
  - ORTHOPNOEA [None]
  - PAIN IN EXTREMITY [None]
  - PULMONARY EMBOLISM [None]
